FAERS Safety Report 8500535-6 (Version None)
Quarter: 2012Q3

REPORT INFORMATION
  Report Type: 
  Country: None (occurrence: None)
  Receive Date: 20120710
  Receipt Date: 20120706
  Transmission Date: 20120928
  Serious: Yes (Hospitalization)
  Sender: FDA-Public Use
  Company Number: DE-ROCHE-1059854

PATIENT
  Sex: Male
  Weight: 70 kg

DRUGS (5)
  1. PREDNISOLONE [Concomitant]
     Indication: POLYCHONDRITIS
     Dates: start: 20090101
  2. ACTEMRA [Suspect]
     Indication: POLYCHONDRITIS
     Route: 042
     Dates: start: 20120320, end: 20120412
  3. ALFUZOSIN HCL [Concomitant]
     Dates: start: 20110101
  4. CALCIVITA [Concomitant]
     Dates: start: 20090101
  5. ACTEMRA [Suspect]
     Indication: POLYARTHRITIS

REACTIONS (2)
  - ABDOMINAL PAIN LOWER [None]
  - FLANK PAIN [None]
